FAERS Safety Report 5092290-X (Version None)
Quarter: 2006Q3

REPORT INFORMATION
  Report Type: 
  Country: None (occurrence: None)
  Receive Date: 20060828
  Receipt Date: 20060828
  Transmission Date: 20061208
  Serious: Yes (Other)
  Sender: FDA-Public Use
  Company Number: None

PATIENT
  Sex: Female
  Weight: 128.8216 kg

DRUGS (2)
  1. IMMUNE GLOBULIN (HUMAN) [Suspect]
     Indication: CHRONIC INFLAMMATORY DEMYELINATING POLYRADICULONEUROPATHY
     Dosage: IV (4G/KG/DAY)
     Route: 042
     Dates: start: 20060817
  2. IMMUNE GLOBULIN (HUMAN) [Suspect]
     Indication: DEMYELINATING POLYNEUROPATHY
     Dosage: IV (4G/KG/DAY)
     Route: 042
     Dates: start: 20060817

REACTIONS (1)
  - PHARMACEUTICAL PRODUCT COMPLAINT [None]
